FAERS Safety Report 18247294 (Version 2)
Quarter: 2020Q3

REPORT INFORMATION
  Report Type: Spontaneous
  Country: US (occurrence: US)
  Receive Date: 20200909
  Receipt Date: 20200927
  Transmission Date: 20201103
  Serious: No
  Sender: FDA-Public Use
  Company Number: US-ASTRAZENECA-2020SF11652

PATIENT
  Age: 24400 Day
  Sex: Male
  Weight: 113.4 kg

DRUGS (2)
  1. BYDUREON [Concomitant]
     Active Substance: EXENATIDE
     Indication: DIABETES MELLITUS
     Route: 058
     Dates: start: 2016, end: 2018
  2. BYDUREON BCISE [Suspect]
     Active Substance: EXENATIDE
     Indication: DIABETES MELLITUS
     Route: 058
     Dates: start: 2018

REACTIONS (5)
  - Injection site haemorrhage [Unknown]
  - Incorrect dose administered by device [Unknown]
  - Wrong technique in device usage process [Unknown]
  - Drug delivery system issue [Unknown]
  - Intentional device misuse [Unknown]

NARRATIVE: CASE EVENT DATE: 20200827
